FAERS Safety Report 4317144-5 (Version None)
Quarter: 2004Q1

REPORT INFORMATION
  Report Type: 
  Country: None (occurrence: None)
  Receive Date: 20040312
  Receipt Date: 20040224
  Transmission Date: 20041129
  Serious: Yes (Death, Life-Threatening, Hospitalization, Disabling)
  Sender: FDA-Public Use
  Company Number: 2004AP00983

PATIENT
  Age: 64 Year
  Sex: Male
  Weight: 93 kg

DRUGS (7)
  1. IRESSA [Suspect]
     Indication: NON-SMALL CELL LUNG CANCER
     Dosage: 250 MG DAILY PO
     Route: 048
     Dates: start: 20031126, end: 20031203
  2. SOTAPOR [Concomitant]
  3. TIRODRIL [Concomitant]
  4. FRUMIL [Concomitant]
  5. ULCERAL [Concomitant]
  6. TARDYFERON [Concomitant]
  7. FORTECORTIN [Concomitant]

REACTIONS (2)
  - PNEUMONIA [None]
  - THROMBOCYTOPENIA [None]
